FAERS Safety Report 12940497 (Version 2)
Quarter: 2017Q1

REPORT INFORMATION
  Report Type: Report from Study
  Country: US (occurrence: US)
  Receive Date: 20161114
  Receipt Date: 20170206
  Transmission Date: 20170428
  Serious: Yes (Hospitalization)
  Sender: FDA-Public Use
  Company Number: US-ACTELION-A-US2016-145260

PATIENT
  Age: 60 Year
  Sex: Female

DRUGS (12)
  1. ADVAIR HFA [Concomitant]
     Active Substance: FLUTICASONE PROPIONATE\SALMETEROL XINAFOATE
  2. AMITRIPTYLINE [Concomitant]
     Active Substance: AMITRIPTYLINE
  3. CEFDINIR. [Concomitant]
     Active Substance: CEFDINIR
  4. MULTIVITAMIN [Concomitant]
     Active Substance: VITAMINS
  5. NADOLOL. [Concomitant]
     Active Substance: NADOLOL
  6. OPSUMIT [Suspect]
     Active Substance: MACITENTAN
     Indication: PULMONARY ARTERIAL HYPERTENSION
     Dosage: 10 MG, QD
     Route: 048
     Dates: start: 201609
  7. CORTISONE [Suspect]
     Active Substance: CORTISONE\HYDROCORTISONE
     Indication: PRODUCT USED FOR UNKNOWN INDICATION
     Route: 065
  8. SPIRONOLACTONE. [Concomitant]
     Active Substance: SPIRONOLACTONE
  9. INCRUSE ELLIPTA [Concomitant]
     Active Substance: UMECLIDINIUM BROMIDE
  10. LORAZEPAM. [Concomitant]
     Active Substance: LORAZEPAM
  11. FUROSEMIDE. [Concomitant]
     Active Substance: FUROSEMIDE
  12. ACETAMINOPHEN W/HYDROCODONE [Concomitant]
     Active Substance: ACETAMINOPHEN\HYDROCODONE

REACTIONS (8)
  - Oesophageal variceal ligation [Unknown]
  - Fluid retention [Recovering/Resolving]
  - Pneumonia [Recovering/Resolving]
  - Malaise [Unknown]
  - Weight decreased [Unknown]
  - Weight increased [Recovering/Resolving]
  - Blood count abnormal [Unknown]
  - Pyrexia [Recovering/Resolving]

NARRATIVE: CASE EVENT DATE: 201609
